FAERS Safety Report 10505758 (Version 3)
Quarter: 2014Q4

REPORT INFORMATION
  Report Type: Report from Study
  Country: US (occurrence: US)
  Receive Date: 20141008
  Receipt Date: 20141112
  Transmission Date: 20150528
  Serious: Yes (Other)
  Sender: FDA-Public Use
  Company Number: US-GILEAD-2014-0115059

PATIENT
  Age: 57 Year
  Sex: Male
  Weight: 65.76 kg

DRUGS (3)
  1. SOFOSBUVIR [Suspect]
     Active Substance: SOFOSBUVIR
     Indication: CHRONIC HEPATITIS C
     Dosage: 400 MG, QD
     Route: 048
     Dates: start: 20140721
  2. OLYSIO [Suspect]
     Active Substance: SIMEPREVIR
     Indication: HEPATITIS C
     Dosage: 150 MG, QD
     Route: 048
     Dates: start: 20140721
  3. TRAZODONE [Concomitant]
     Active Substance: TRAZODONE HYDROCHLORIDE

REACTIONS (38)
  - Chest discomfort [Not Recovered/Not Resolved]
  - Rash [Recovered/Resolved]
  - Anger [Recovered/Resolved]
  - Weight increased [Not Recovered/Not Resolved]
  - Headache [Recovered/Resolved]
  - Arthralgia [Not Recovered/Not Resolved]
  - Blood sodium decreased [Unknown]
  - Increased appetite [Not Recovered/Not Resolved]
  - Influenza like illness [Not Recovered/Not Resolved]
  - Respiratory tract congestion [Unknown]
  - Insomnia [Not Recovered/Not Resolved]
  - Fatigue [Unknown]
  - Memory impairment [Unknown]
  - Dyspnoea [Unknown]
  - Myalgia [Unknown]
  - Hypoaesthesia [Recovered/Resolved]
  - Back pain [Unknown]
  - Depression [Not Recovered/Not Resolved]
  - Malaise [Unknown]
  - Off label use [Not Recovered/Not Resolved]
  - Chills [Unknown]
  - Malaise [Unknown]
  - Blepharospasm [Unknown]
  - Neck pain [Unknown]
  - Cough [Not Recovered/Not Resolved]
  - Therapeutic response unexpected [Unknown]
  - Dysphagia [Not Recovered/Not Resolved]
  - Anxiety [Recovered/Resolved]
  - Energy increased [Unknown]
  - Feeling abnormal [Not Recovered/Not Resolved]
  - Tinnitus [Not Recovered/Not Resolved]
  - Photophobia [Not Recovered/Not Resolved]
  - Sunburn [Unknown]
  - Agitation [Recovered/Resolved]
  - Pyrexia [Not Recovered/Not Resolved]
  - Oropharyngeal pain [Unknown]
  - Nervousness [Unknown]
  - Paraesthesia [Not Recovered/Not Resolved]

NARRATIVE: CASE EVENT DATE: 2014
